FAERS Safety Report 9105591 (Version 2)
Quarter: 2015Q1

REPORT INFORMATION
  Report Type: Report from Study
  Country: KR (occurrence: KR)
  Receive Date: 20130220
  Receipt Date: 20150115
  Transmission Date: 20150721
  Serious: Yes (Death)
  Sender: FDA-Public Use
  Company Number: KR-OTSUKA-US-2013-10243

PATIENT

DRUGS (1)
  1. BUSULFEX [Suspect]
     Active Substance: BUSULFAN
     Indication: NON-HODGKIN^S LYMPHOMA
     Dosage: 3.2 MG/KG, QD
     Route: 042

REACTIONS (2)
  - Septic shock [Fatal]
  - Pneumonia [Fatal]
